FAERS Safety Report 7728733-X (Version None)
Quarter: 2011Q3

REPORT INFORMATION
  Report Type: 
  Country: None (occurrence: None)
  Receive Date: 20110906
  Receipt Date: 20110826
  Transmission Date: 20111222
  Serious: Yes (Death, Hospitalization, Other)
  Sender: FDA-Public Use
  Company Number: CA-JNJFOC-20090701920

PATIENT
  Sex: Male
  Weight: 84 kg

DRUGS (21)
  1. CNTO 1275 [Suspect]
     Route: 058
     Dates: start: 20090205
  2. ACTONEL [Concomitant]
     Indication: PROPHYLAXIS
     Route: 048
     Dates: start: 20080730
  3. CNTO 1275 [Suspect]
     Route: 058
     Dates: start: 20071220
  4. ASAPHEN [Concomitant]
     Indication: PROPHYLAXIS
     Route: 048
     Dates: start: 20080723
  5. CNTO 1275 [Suspect]
     Route: 058
     Dates: start: 20090421
  6. CNTO 1275 [Suspect]
     Route: 058
     Dates: start: 20060928
  7. CNTO 1275 [Suspect]
     Indication: PSORIASIS
     Route: 058
     Dates: start: 20070510
  8. CNTO 1275 [Suspect]
     Route: 058
     Dates: start: 20061123
  9. CNTO 1275 [Suspect]
     Route: 058
     Dates: start: 20060704
  10. CNTO 1275 [Suspect]
     Route: 058
     Dates: start: 20080313
  11. LIPITOR [Concomitant]
     Indication: HYPERCHOLESTEROLAEMIA
     Route: 048
     Dates: start: 20090110
  12. CNTO 1275 [Suspect]
     Route: 058
     Dates: start: 20070802
  13. CNTO 1275 [Suspect]
     Route: 058
     Dates: start: 20071025
  14. CNTO 1275 [Suspect]
     Route: 058
     Dates: start: 20081114
  15. PRILOSEC [Concomitant]
     Indication: PROPHYLAXIS
     Route: 048
     Dates: start: 20070601
  16. CNTO 1275 [Suspect]
     Route: 058
     Dates: start: 20080605
  17. CNTO 1275 [Suspect]
     Route: 058
     Dates: start: 20090521
  18. CNTO 1275 [Suspect]
     Route: 058
     Dates: start: 20070222
  19. CNTO 1275 [Suspect]
     Route: 058
     Dates: start: 20060606
  20. SOTALOL HCL [Concomitant]
     Indication: PROPHYLAXIS
     Route: 048
     Dates: start: 20080730
  21. VITAMIN D [Concomitant]
     Indication: PROPHYLAXIS
     Route: 048
     Dates: start: 20080730

REACTIONS (1)
  - PANCREATIC CARCINOMA METASTATIC [None]
